FAERS Safety Report 9154567 (Version 1)
Quarter: 2013Q1

REPORT INFORMATION
  Report Type: Report from Study
  Country: US (occurrence: US)
  Receive Date: 20130311
  Receipt Date: 20130311
  Transmission Date: 20140127
  Serious: No
  Sender: FDA-Public Use
  Company Number: US-ABBOTT-12P-163-0967807-00

PATIENT
  Sex: Female
  Weight: 81.72 kg

DRUGS (3)
  1. LUPRON DEPOT 11.25 MG [Suspect]
     Indication: ENDOMETRIOSIS
     Dates: start: 20120511
  2. UNKNOWN MEDICATIONS [Concomitant]
     Indication: MIGRAINE
  3. AYGESTIN [Concomitant]
     Indication: HORMONE REPLACEMENT THERAPY
     Dates: start: 201205

REACTIONS (1)
  - Pelvic pain [Not Recovered/Not Resolved]
